FAERS Safety Report 7420703-4 (Version None)
Quarter: 2011Q2

REPORT INFORMATION
  Report Type: 
  Country: None (occurrence: None)
  Receive Date: 20110418
  Receipt Date: 20101116
  Transmission Date: 20111010
  Serious: Yes (Hospitalization, Other)
  Sender: FDA-Public Use
  Company Number: US-BAYER-201031818NA

PATIENT
  Age: 49 Year
  Sex: Female
  Weight: 78.458 kg

DRUGS (8)
  1. CITALOPRAM HYDROBROMIDE [Concomitant]
     Indication: STRESS
  2. TRIAMTERENE AND HYDROCHLOROTHIAZIDE [Concomitant]
     Indication: MENIERE'S DISEASE
     Dosage: 37.5 UNK, UNK
     Dates: start: 19980101
  3. LIPITOR [Concomitant]
     Indication: BLOOD CHOLESTEROL INCREASED
  4. YASMIN [Suspect]
     Indication: MENSTRUAL DISORDER
     Dosage: UNK
     Dates: start: 20040101, end: 20050101
  5. ASCORBIC ACID [Concomitant]
  6. MAXZIDE [Concomitant]
     Dosage: 25 MG, UNK
  7. CALCIUM [Concomitant]
  8. MULTI-VITAMIN [Concomitant]

REACTIONS (3)
  - PULMONARY EMBOLISM [None]
  - CHEST PAIN [None]
  - THROMBOSIS [None]
